FAERS Safety Report 10721850 (Version 3)
Quarter: 2015Q1

REPORT INFORMATION
  Report Type: Report from Study
  Country: US (occurrence: US)
  Receive Date: 20150120
  Receipt Date: 20150212
  Transmission Date: 20150721
  Serious: Yes (Hospitalization, Other)
  Sender: FDA-Public Use
  Company Number: US-AMGEN-USASL2015003029

PATIENT
  Age: 70 Year
  Sex: Male
  Weight: 103.3 kg

DRUGS (22)
  1. PROTONIX [Concomitant]
     Active Substance: PANTOPRAZOLE SODIUM
  2. LORAZEPAM. [Concomitant]
     Active Substance: LORAZEPAM
     Dosage: UNK UNK, AS NECESSARY
  3. OXYCODONE [Concomitant]
     Active Substance: OXYCODONE
     Dosage: UNK UNK, AS NECESSARY
  4. ZOLPIDEM [Concomitant]
     Active Substance: ZOLPIDEM\ZOLPIDEM TARTRATE
     Dosage: UNK UNK, AS NECESSARY
  5. ACYCLOVIR                          /00587301/ [Concomitant]
     Active Substance: ACYCLOVIR
  6. ATIVAN [Concomitant]
     Active Substance: LORAZEPAM
  7. LIALDA [Concomitant]
     Active Substance: MESALAMINE
  8. HYDROXYUREA. [Concomitant]
     Active Substance: HYDROXYUREA
     Dosage: 1000 MG, BID
     Dates: start: 20141230
  9. SODIUM PHOSPHATE [Concomitant]
     Active Substance: SODIUM PHOSPHATE
     Dosage: UNK UNK, AS NECESSARY
  10. HYDREA [Concomitant]
     Active Substance: HYDROXYUREA
     Dosage: UNK
     Dates: start: 20150112
  11. ALLOPURINOL                        /00003302/ [Concomitant]
     Active Substance: ALLOPURINOL
  12. CYTARABINE. [Concomitant]
     Active Substance: CYTARABINE
     Indication: ACUTE LYMPHOCYTIC LEUKAEMIA
  13. MAGNESIUM SULFATE. [Concomitant]
     Active Substance: MAGNESIUM SULFATE
     Dosage: UNK UNK, AS NECESSARY
  14. LEVAQUIN LEVA-PAK [Concomitant]
     Dosage: 500 MG, QD
  15. POTASSIUM [Concomitant]
     Active Substance: POTASSIUM
     Dosage: UNK UNK, AS NECESSARY
  16. SENNA [Concomitant]
     Active Substance: SENNA LEAF\SENNOSIDES\SENNOSIDES A AND B
     Dosage: UNK UNK, AS NECESSARY
  17. CARAFATE [Concomitant]
     Active Substance: SUCRALFATE
  18. PEPTO BISMOL                       /00139305/ [Concomitant]
     Dosage: UNK UNK, AS NECESSARY
  19. DOCUSATE [Concomitant]
     Active Substance: DOCUSATE
     Dosage: UNK UNK, AS NECESSARY
  20. BLINCYTO [Suspect]
     Active Substance: BLINATUMOMAB
     Indication: ACUTE LYMPHOCYTIC LEUKAEMIA
     Dosage: 9 MUG (IV CONTINUOUS AT 10ML/HOUR), QD
     Route: 042
     Dates: start: 20150103
  21. BLINCYTO [Suspect]
     Active Substance: BLINATUMOMAB
     Dosage: 28 MUG, QD
     Route: 042
     Dates: start: 20150110, end: 20150115
  22. COREG [Concomitant]
     Active Substance: CARVEDILOL

REACTIONS (9)
  - Cytokine release syndrome [Unknown]
  - Blood pressure increased [Unknown]
  - Pyrexia [Recovered/Resolved]
  - Platelet count decreased [Not Recovered/Not Resolved]
  - Hypotension [Unknown]
  - Chills [Recovering/Resolving]
  - Anxiety [Unknown]
  - Blast cell count increased [Not Recovered/Not Resolved]
  - Adverse drug reaction [Not Recovered/Not Resolved]

NARRATIVE: CASE EVENT DATE: 20150103
